FAERS Safety Report 9716705 (Version 1)
Quarter: 2013Q4

REPORT INFORMATION
  Report Type: Spontaneous
  Country: US (occurrence: US)
  Receive Date: 20131127
  Receipt Date: 20131127
  Transmission Date: 20140711
  Serious: No
  Sender: FDA-Public Use
  Company Number: US-ENDO PHARMACEUTICALS INC.-HYDR20120004

PATIENT
  Sex: Female

DRUGS (2)
  1. HYDROCORTISONE TABLETS 5MG [Suspect]
     Indication: ASTHMA
     Route: 048
     Dates: start: 201201
  2. HYDROCORTISONE TABLETS 5MG [Suspect]
     Route: 048
     Dates: start: 201201

REACTIONS (3)
  - Abdominal discomfort [Unknown]
  - Abdominal pain lower [Unknown]
  - Flatulence [Unknown]
